FAERS Safety Report 6061808-2 (Version None)
Quarter: 2009Q1

REPORT INFORMATION
  Report Type: 
  Country: None (occurrence: None)
  Receive Date: 20090202
  Receipt Date: 20090120
  Transmission Date: 20090719
  Serious: Yes (Hospitalization)
  Sender: FDA-Public Use
  Company Number: GB-ELI_LILLY_AND_COMPANY-GB200901003128

PATIENT
  Age: 59 Year
  Sex: Female
  Weight: 101 kg

DRUGS (9)
  1. BYETTA [Suspect]
     Indication: TYPE 2 DIABETES MELLITUS
     Dosage: 10 UG, DAILY (1/D)
     Route: 058
     Dates: start: 20081024, end: 20081215
  2. ASPIRIN [Concomitant]
     Dosage: 75 MG, 1 DAY
     Route: 048
     Dates: end: 20081215
  3. ATORVASTATIN [Concomitant]
     Dosage: 40 MG, DAILY (1/D)
     Route: 048
  4. BENDROFLUMETHIAZIDE [Concomitant]
     Dosage: 2.5 MG, DAILY (1/D)
     Route: 048
     Dates: end: 20081215
  5. DOXAZOSIN MESYLATE [Concomitant]
     Indication: HYPERTENSION
     Dosage: 2 MG, DAILY (1/D)
     Route: 048
     Dates: end: 20081215
  6. FELODIPINE [Concomitant]
     Dosage: 2.5 MG, DAILY (1/D)
     Route: 048
     Dates: end: 20081215
  7. GLICLAZIDE [Concomitant]
     Indication: TYPE 2 DIABETES MELLITUS
     Dosage: 80 MG, DAILY (1/D)
     Route: 048
  8. METFORMIN [Concomitant]
     Indication: TYPE 2 DIABETES MELLITUS
     Dosage: 1 G, 3/D
     Route: 048
     Dates: end: 20081215
  9. PERINDOPRIL ERBUMINE [Concomitant]
     Indication: HYPERTENSION
     Dosage: 4 MG, DAILY (1/D)
     Route: 048
     Dates: end: 20081215

REACTIONS (3)
  - CHOLECYSTITIS [None]
  - PANCREATITIS [None]
  - RENAL FAILURE ACUTE [None]
